FAERS Safety Report 9180093 (Version 1)
Quarter: 2012Q4

REPORT INFORMATION
  Report Type: 
  Country: US (occurrence: US)
  Receive Date: 20121029
  Receipt Date: 20121029
  Transmission Date: 20130627
  Serious: No
  Sender: FDA-Public Use
  Company Number: US-009507513-1210USA004031

PATIENT
  Sex: Female

DRUGS (1)
  1. ASMANEX TWISTHALER [Suspect]
     Dosage: 1 standard dose of 60, 1 to 2 puffs qd
     Route: 055
     Dates: start: 20120411

REACTIONS (5)
  - Drug administration error [Unknown]
  - Underdose [Unknown]
  - No adverse event [Unknown]
  - Product quality issue [Unknown]
  - Intentional drug misuse [Unknown]
